FAERS Safety Report 9440470 (Version 1)
Quarter: 2013Q3

REPORT INFORMATION
  Report Type: Spontaneous
  Country: FR (occurrence: FR)
  Receive Date: 20130805
  Receipt Date: 20130805
  Transmission Date: 20140515
  Serious: Yes (Hospitalization)
  Sender: FDA-Public Use
  Company Number: FR-AMGEN-FRASP2013054214

PATIENT
  Age: 73 Year
  Sex: Male

DRUGS (9)
  1. VECTIBIX [Suspect]
     Indication: RECTAL CANCER METASTATIC
     Dosage: 540 MG, 15 DAYS
     Route: 042
     Dates: start: 20130424, end: 20130702
  2. KARDEGIC [Concomitant]
     Dosage: UNK
  3. COVERSYL                           /00790702/ [Concomitant]
     Dosage: UNK
  4. LEVETIRACETAM [Concomitant]
     Dosage: UNK
  5. ARESTAL                            /00384301/ [Concomitant]
     Indication: PROPHYLAXIS AGAINST DIARRHOEA
     Dosage: UNK
  6. DAFALGAN [Concomitant]
     Dosage: UNK
  7. ECONAZOLE [Concomitant]
     Dosage: UNK
  8. SOLUPRED                           /00016201/ [Concomitant]
     Dosage: UNK
  9. INEXIUM                            /01479302/ [Concomitant]
     Dosage: UNK

REACTIONS (1)
  - Hypocalcaemia [Recovered/Resolved]
